FAERS Safety Report 4442958-0 (Version None)
Quarter: 2004Q3

REPORT INFORMATION
  Report Type: 
  Country: None (occurrence: None)
  Receive Date: 20040728
  Receipt Date: 20040504
  Transmission Date: 20050211
  Serious: No
  Sender: FDA-Public Use
  Company Number: USA040566676

PATIENT
  Age: 31 Year
  Sex: Male
  Weight: 96 kg

DRUGS (2)
  1. STRATTERA [Suspect]
     Indication: ATTENTION DEFICIT/HYPERACTIVITY DISORDER
     Dosage: 40 MG/2 DAY
     Dates: start: 20040101
  2. NEXIUM [Concomitant]

REACTIONS (4)
  - ANORGASMIA [None]
  - MICTURITION URGENCY [None]
  - SOMNOLENCE [None]
  - URINARY INCONTINENCE [None]
